FAERS Safety Report 25607603 (Version 1)
Quarter: 2025Q3

REPORT INFORMATION
  Report Type: Spontaneous
  Country: US (occurrence: US)
  Receive Date: 20250725
  Receipt Date: 20250725
  Transmission Date: 20251020
  Serious: No
  Sender: ABBVIE
  Company Number: US-ABBVIE-6380060

PATIENT
  Age: 66 Year
  Sex: Female
  Weight: 63.502 kg

DRUGS (4)
  1. QULIPTA [Suspect]
     Active Substance: ATOGEPANT
     Indication: Product used for unknown indication
     Route: 048
     Dates: start: 20250210, end: 20250624
  2. ICOSAPENT [Concomitant]
     Active Substance: ICOSAPENT
     Indication: Headache
  3. ACETAMINOPHEN\HYDROCODONE [Concomitant]
     Active Substance: ACETAMINOPHEN\HYDROCODONE
     Indication: Headache
  4. GABAPENTIN [Concomitant]
     Active Substance: GABAPENTIN
     Indication: Headache

REACTIONS (2)
  - Poor quality product administered [Not Recovered/Not Resolved]
  - Product contamination [Not Recovered/Not Resolved]

NARRATIVE: CASE EVENT DATE: 20250101
